FAERS Safety Report 14008064 (Version 4)
Quarter: 2018Q2

REPORT INFORMATION
  Report Type: Spontaneous
  Country: US (occurrence: US)
  Receive Date: 20170925
  Receipt Date: 20180502
  Transmission Date: 20180711
  Serious: No
  Sender: FDA-Public Use
  Company Number: US-PFIZER INC-2017411301

PATIENT
  Age: 54 Year
  Sex: Female

DRUGS (1)
  1. XELJANZ [Suspect]
     Active Substance: TOFACITINIB CITRATE
     Indication: RHEUMATOID ARTHRITIS
     Dosage: 5 MG, 2X/DAY (ON AND OFF FOR 2 YEARS)
     Route: 048
     Dates: start: 2016

REACTIONS (7)
  - White blood cell count decreased [Unknown]
  - Fibromyalgia [Unknown]
  - Blood cholesterol increased [Unknown]
  - Muscle spasms [Recovered/Resolved]
  - Blood pressure increased [Unknown]
  - Headache [Recovering/Resolving]
  - Condition aggravated [Unknown]

NARRATIVE: CASE EVENT DATE: 20170905
